FAERS Safety Report 7815458-5 (Version None)
Quarter: 2011Q4

REPORT INFORMATION
  Report Type: 
  Country: None (occurrence: None)
  Receive Date: 20111005
  Receipt Date: 20110928
  Transmission Date: 20120403
  Serious: Yes (Other)
  Sender: FDA-Public Use
  Company Number: 2011029926

PATIENT
  Age: 46 Year
  Sex: Female
  Weight: 102.0593 kg

DRUGS (33)
  1. ADVAIR HFA [Concomitant]
  2. ATIVAN [Concomitant]
  3. XYZAL [Concomitant]
  4. OXYCODONE HCL [Concomitant]
  5. AMBIEN [Concomitant]
  6. ALLEGRA [Concomitant]
  7. PROMETHAZINE [Concomitant]
  8. FLONASE [Concomitant]
  9. ZANAFLEX [Concomitant]
  10. LIBRAX [Concomitant]
  11. ENOXAPARIN SODIUM [Concomitant]
  12. LEVEMIR [Concomitant]
  13. CRESTOR [Concomitant]
  14. DOMPERIDONE (DOMPERIDONE) [Concomitant]
  15. TIGAN [Concomitant]
  16. SYNTHROID [Concomitant]
  17. COREG [Concomitant]
  18. MS CONTIN [Concomitant]
  19. LISINOPRIL [Concomitant]
  20. OXYGEN (OXYGEN) [Concomitant]
  21. CYTOTEC [Concomitant]
  22. ACETAMINOPHEN [Concomitant]
  23. HIZENTRA [Suspect]
     Indication: HYPOGAMMAGLOBULINAEMIA
     Dosage: 8 G 2X/WEEK, INFUSED 40 ML VIA 4 SITES OVER 2.5 HOURS SUBCUTANEOUS, SUBCUTANEOUS
     Route: 058
     Dates: start: 20110921
  24. HIZENTRA [Suspect]
     Indication: HYPOGAMMAGLOBULINAEMIA
     Dosage: 8 G 2X/WEEK, INFUSED 40 ML VIA 4 SITES OVER 2.5 HOURS SUBCUTANEOUS, SUBCUTANEOUS
     Route: 058
     Dates: start: 20110103
  25. SOMA [Concomitant]
  26. PROVENTIL [Concomitant]
  27. CYMBALTA [Concomitant]
  28. NORVASC [Concomitant]
  29. CLONIDINE [Concomitant]
  30. NEXIUM [Concomitant]
  31. MIRAPEX [Concomitant]
  32. ZETIA [Concomitant]
  33. ANTIVERT [Concomitant]

REACTIONS (1)
  - UPPER RESPIRATORY TRACT INFECTION [None]
